FAERS Safety Report 7724292-6 (Version None)
Quarter: 2011Q3

REPORT INFORMATION
  Report Type: 
  Country: None (occurrence: None)
  Receive Date: 20110901
  Receipt Date: 20110830
  Transmission Date: 20111222
  Serious: Yes (Other)
  Sender: FDA-Public Use
  Company Number: US-ABBOTT-11P-163-0847958-00

PATIENT
  Sex: Female
  Weight: 72.64 kg

DRUGS (9)
  1. URSODIOL [Concomitant]
     Indication: BILIARY TRACT DISORDER
     Dates: start: 19870101
  2. SERTRALINE HYDROCHLORIDE [Concomitant]
     Indication: DEPRESSION
  3. ATIVAN [Concomitant]
     Indication: ANXIETY
     Dosage: 4 MG AS NEEDED (RARELY TAKES)
  4. VESICARE [Concomitant]
     Indication: URGE INCONTINENCE
     Dates: start: 20010101
  5. PRAVASTATIN [Concomitant]
     Indication: BLOOD CHOLESTEROL INCREASED
     Dosage: AT BEDTIME
     Dates: start: 20070101
  6. OMEPRAZOLE [Concomitant]
     Indication: GASTROOESOPHAGEAL REFLUX DISEASE
     Dosage: AT BEDTIME
  7. BETAMETHASONE [Concomitant]
     Indication: SKIN DISORDER
     Dates: start: 19910101
  8. HUMIRA [Suspect]
     Indication: PSORIATIC ARTHROPATHY
     Dates: start: 20090101
  9. AMBIEN [Concomitant]
     Indication: INSOMNIA
     Dates: start: 20070101

REACTIONS (6)
  - WEIGHT DECREASED [None]
  - NAUSEA [None]
  - PANCREAS DIVISUM [None]
  - MUSCULOSKELETAL STIFFNESS [None]
  - PSORIASIS [None]
  - ABDOMINAL PAIN UPPER [None]
